FAERS Safety Report 5768008-1 (Version None)
Quarter: 2008Q2

REPORT INFORMATION
  Report Type: 
  Country: None (occurrence: None)
  Receive Date: 20080601
  Receipt Date: 20080304
  Transmission Date: 20081010
  Serious: No
  Sender: FDA-Public Use
  Company Number: US200803002338

PATIENT
  Age: 23 Year
  Sex: Female

DRUGS (3)
  1. BYETTA [Suspect]
     Indication: POLYCYSTIC OVARIES
     Dosage: 5 UG, 2/D, SUBCUTANEOUS ; 10 UG, 2/D, SUBCUTANEOUS
     Route: 058
     Dates: start: 20071101, end: 20080101
  2. BYETTA [Suspect]
     Indication: POLYCYSTIC OVARIES
     Dosage: 5 UG, 2/D, SUBCUTANEOUS ; 10 UG, 2/D, SUBCUTANEOUS
     Route: 058
     Dates: start: 20080101
  3. SPIRONOLACTONE [Concomitant]

REACTIONS (3)
  - AMENORRHOEA [None]
  - BREAST TENDERNESS [None]
  - UNEVALUABLE EVENT [None]
